FAERS Safety Report 18327609 (Version 1)
Quarter: 2020Q3

REPORT INFORMATION
  Report Type: Spontaneous
  Country: US (occurrence: US)
  Receive Date: 20200930
  Receipt Date: 20200930
  Transmission Date: 20201103
  Serious: Yes (Other)
  Sender: FDA-Public Use
  Company Number: US-AUROBINDO-AUR-APL-2020-049760

PATIENT
  Age: 27 Year
  Sex: Male

DRUGS (6)
  1. DOPAMINE [Concomitant]
     Active Substance: DOPAMINE HYDROCHLORIDE
     Indication: BRADYCARDIA
     Dosage: UNK
     Route: 065
  2. ATROPINE. [Suspect]
     Active Substance: ATROPINE
     Indication: PRODUCT USED FOR UNKNOWN INDICATION
     Dosage: 1 MILLIGRAM
     Route: 065
  3. SODIUM CHLORIDE. [Suspect]
     Active Substance: SODIUM CHLORIDE
     Indication: PRODUCT USED FOR UNKNOWN INDICATION
     Dosage: 2 LITER
     Route: 040
  4. EPINEPHRINE. [Concomitant]
     Active Substance: EPINEPHRINE
     Indication: HAEMODYNAMIC INSTABILITY
     Dosage: UNK
     Route: 065
  5. NALOXONE HYDROCHLORIDE. [Suspect]
     Active Substance: NALOXONE HYDROCHLORIDE
     Indication: PRODUCT USED FOR UNKNOWN INDICATION
     Dosage: 6 MILLIGRAM
     Route: 065
  6. DOPAMINE [Concomitant]
     Active Substance: DOPAMINE HYDROCHLORIDE
     Indication: HYPOTENSION

REACTIONS (1)
  - Drug ineffective [Unknown]
